FAERS Safety Report 7653966-0 (Version None)
Quarter: 2011Q3

REPORT INFORMATION
  Report Type: 
  Country: None (occurrence: None)
  Receive Date: 20110803
  Receipt Date: 20110729
  Transmission Date: 20111222
  Serious: Yes (Life-Threatening, Hospitalization, Other)
  Sender: FDA-Public Use
  Company Number: FR-PFIZER INC-2011116870

PATIENT
  Age: 38 Year
  Sex: Female
  Weight: 52 kg

DRUGS (6)
  1. TRAMADOL HCL [Concomitant]
     Indication: PAIN
     Dosage: 200 MG, 2X/DAY
     Route: 048
  2. CELEBREX [Suspect]
     Indication: ANKYLOSING SPONDYLITIS
     Dosage: 200 MG, 1 TO 2 TIMES DAILY
     Dates: start: 20001018
  3. PARACETAMOL [Concomitant]
     Indication: PAIN
     Dosage: 1 G, 4X/DAY
     Route: 048
  4. ETANERCEPT [Concomitant]
     Dosage: UNK
  5. NEXIUM [Concomitant]
     Indication: GASTRITIS
     Dosage: 20 MG, 1X/DAY
     Route: 048
  6. EBASTINE [Concomitant]
     Indication: HYPERSENSITIVITY
     Dosage: 1 DF, 1X/DAY
     Route: 048

REACTIONS (3)
  - METABOLIC SYNDROME [None]
  - ANGINA PECTORIS [None]
  - PRINZMETAL ANGINA [None]
